FAERS Safety Report 17974924 (Version 1)
Quarter: 2020Q3

REPORT INFORMATION
  Report Type: Spontaneous
  Country: IT (occurrence: IT)
  Receive Date: 20200702
  Receipt Date: 20200702
  Transmission Date: 20201103
  Serious: Yes (Other)
  Sender: FDA-Public Use
  Company Number: IT-PFIZER INC-2020250471

PATIENT
  Age: 13 Year
  Sex: Male

DRUGS (5)
  1. METHOTREXATE. [Suspect]
     Active Substance: METHOTREXATE
     Dosage: UNK (8 G/SM)
  2. CISPLATIN. [Suspect]
     Active Substance: CISPLATIN
     Dosage: UNK (80 MG/SM)
  3. CISPLATIN. [Suspect]
     Active Substance: CISPLATIN
     Indication: OSTEOSARCOMA
     Dosage: UNK (120 MG/SM)
  4. METHOTREXATE. [Suspect]
     Active Substance: METHOTREXATE
     Indication: OSTEOSARCOMA
     Dosage: UNK (12 G/SM)
  5. METHOTREXATE. [Suspect]
     Active Substance: METHOTREXATE
     Dosage: UNK (10 G/SM)

REACTIONS (4)
  - Psychomotor hyperactivity [Unknown]
  - Epilepsy [Recovered/Resolved]
  - Confusional state [Unknown]
  - Pyrexia [Unknown]
